FAERS Safety Report 4569767-6 (Version None)
Quarter: 2005Q1

REPORT INFORMATION
  Report Type: 
  Country: None (occurrence: None)
  Receive Date: 20050131
  Receipt Date: 20050113
  Transmission Date: 20050727
  Serious: Yes (Hospitalization)
  Sender: FDA-Public Use
  Company Number: 2005016274

PATIENT
  Age: 57 Year
  Sex: Female
  Weight: 109.7705 kg

DRUGS (3)
  1. LIPITOR [Suspect]
     Indication: ILL-DEFINED DISORDER
     Dosage: 20 MG (20 MG, 1 IN 1 D)
     Dates: end: 20040803
  2. CELEBREX [Suspect]
     Indication: PAIN
     Dosage: 200 MG, PRN, ORAL
     Route: 048
  3. CIMETIDINE [Concomitant]

REACTIONS (26)
  - ABDOMINAL PAIN LOWER [None]
  - ACUTE SINUSITIS [None]
  - ARTHRALGIA [None]
  - BACK PAIN [None]
  - CALCINOSIS [None]
  - DEHYDRATION [None]
  - DYSPEPSIA [None]
  - EAR PAIN [None]
  - FACIAL PAIN [None]
  - HEADACHE [None]
  - HYPOAESTHESIA [None]
  - MICTURITION URGENCY [None]
  - NASOPHARYNGITIS [None]
  - OEDEMA PERIPHERAL [None]
  - OSTEOARTHRITIS [None]
  - PAIN IN EXTREMITY [None]
  - PAIN IN JAW [None]
  - PHARYNGITIS [None]
  - RHABDOMYOLYSIS [None]
  - RHINITIS SEASONAL [None]
  - RIB DEFORMITY [None]
  - SWELLING FACE [None]
  - TOOTHACHE [None]
  - URINARY TRACT INFECTION [None]
  - UTERINE LEIOMYOMA [None]
  - VAGINAL DISCHARGE [None]
